FAERS Safety Report 6245844-9 (Version None)
Quarter: 2009Q2

REPORT INFORMATION
  Report Type: 
  Country: None (occurrence: None)
  Receive Date: 20090626
  Receipt Date: 20070611
  Transmission Date: 20091009
  Serious: Yes (Other)
  Sender: FDA-Public Use
  Company Number: US-ASTRAZENECA-2006UW11833

PATIENT
  Age: 18199 Day
  Sex: Female
  Weight: 87.5 kg

DRUGS (11)
  1. SEROQUEL [Suspect]
     Indication: BIPOLAR DISORDER
     Dosage: 100 MG - 400 MG
     Route: 048
     Dates: start: 20020208
  2. RISPERDAL [Concomitant]
  3. ZYPREXA [Concomitant]
  4. DOCUSATE [Concomitant]
     Route: 048
  5. TEGRETOL [Concomitant]
     Route: 048
  6. BENICAR [Concomitant]
     Dosage: 30 MG - 40 MG
     Route: 048
  7. ALLEGRA [Concomitant]
     Route: 048
  8. TRIAMTERENE AND HYDROCHLOROTHIAZIDE [Concomitant]
     Dosage: 37.5 MG/ 25 MG
     Route: 048
  9. NEURONTIN [Concomitant]
     Route: 048
  10. PREMARIN [Concomitant]
     Route: 048
  11. MOTRIN [Concomitant]
     Route: 048

REACTIONS (4)
  - DIABETES MELLITUS [None]
  - DIABETIC NEUROPATHY [None]
  - GLUCOSE TOLERANCE IMPAIRED [None]
  - TYPE 2 DIABETES MELLITUS [None]
